FAERS Safety Report 26083294 (Version 1)
Quarter: 2025Q4

REPORT INFORMATION
  Report Type: Spontaneous
  Country: EU (occurrence: EU)
  Receive Date: 20251124
  Receipt Date: 20251124
  Transmission Date: 20260118
  Serious: Yes (Other)
  Sender: BAYER HEALTHCARE PHARMACEUTICALS INC.
  Company Number: None

PATIENT
  Age: 76 Year
  Sex: Female

DRUGS (1)
  1. ULTRAVIST [Suspect]
     Active Substance: IOPROMIDE
     Indication: Product used for unknown indication
     Dosage: UNK, ONCE
     Dates: start: 20251030, end: 20251030

REACTIONS (1)
  - Papule [Recovered/Resolved]

NARRATIVE: CASE EVENT DATE: 20251030
